FAERS Safety Report 9770461 (Version 1)
Quarter: 2013Q4

REPORT INFORMATION
  Report Type: Spontaneous
  Country: US (occurrence: US)
  Receive Date: 20131218
  Receipt Date: 20131218
  Transmission Date: 20140711
  Serious: No
  Sender: FDA-Public Use
  Company Number: US-BIOGENIDEC-2013BI113947

PATIENT
  Age: 55 Year
  Sex: Female
  Weight: 74 kg

DRUGS (15)
  1. TECFIDERA [Suspect]
     Indication: PRODUCT USED FOR UNKNOWN INDICATION
     Route: 048
  2. TECFIDERA [Suspect]
     Indication: PRODUCT USED FOR UNKNOWN INDICATION
     Route: 048
  3. NOVOLOG [Concomitant]
     Route: 058
  4. LOVASTATIN [Concomitant]
     Route: 048
  5. CLONAZEPAM [Concomitant]
     Route: 048
  6. AMITRIPTYLIN [Concomitant]
     Route: 048
  7. VITAMIN D3 [Concomitant]
     Route: 048
  8. CALCIUM + D [Concomitant]
     Route: 048
  9. BACLOFEN [Concomitant]
     Route: 048
  10. DIAZEPAM [Concomitant]
     Route: 048
  11. AMANTADINE [Concomitant]
     Route: 048
  12. FENOFIBRIC [Concomitant]
     Route: 048
  13. METFORMIN [Concomitant]
     Route: 048
  14. FOSAMAX [Concomitant]
     Route: 048
  15. VANTIN [Concomitant]
     Route: 048

REACTIONS (3)
  - Paranasal sinus hypersecretion [Unknown]
  - Dyspepsia [Unknown]
  - Nausea [Unknown]
